FAERS Safety Report 22389997 (Version 3)
Quarter: 2023Q2

REPORT INFORMATION
  Report Type: Spontaneous
  Country: US (occurrence: US)
  Receive Date: 20230531
  Receipt Date: 20230602
  Transmission Date: 20230722
  Serious: No
  Sender: FDA-Public Use
  Company Number: US-Dermavant-000636

PATIENT

DRUGS (2)
  1. TAPINAROF [Suspect]
     Active Substance: TAPINAROF
     Dosage: TIME INTERVAL: 0.33333333 DAYS
  2. CIMZIA [Concomitant]
     Active Substance: CERTOLIZUMAB PEGOL

REACTIONS (2)
  - Inappropriate schedule of product administration [Unknown]
  - Folliculitis [Unknown]
